FAERS Safety Report 8756282 (Version 2)
Quarter: 2013Q1

REPORT INFORMATION
  Report Type: Spontaneous
  Country: BR (occurrence: BR)
  Receive Date: 20120828
  Receipt Date: 20130208
  Transmission Date: 20140127
  Serious: Yes (Other)
  Sender: FDA-Public Use
  Company Number: PHHY2012BR073671

PATIENT
  Age: 24 Year
  Sex: Male
  Weight: 87 kg

DRUGS (8)
  1. TRILEPTAL [Suspect]
     Indication: EPILEPSY
     Dosage: 600 MG, Q8H
     Route: 048
  2. DEPAKENE [Concomitant]
     Indication: EPILEPSY
     Dosage: 500 MG, Q12H
     Route: 048
  3. HALOPERIDOL [Concomitant]
     Indication: PSYCHOTIC DISORDER
     Dosage: 5 MG, Q12H
     Route: 048
     Dates: start: 2004
  4. LEVOMEPROMAZINE [Concomitant]
     Indication: PSYCHOTIC DISORDER
     Dosage: 100 MG, Q12H
     Route: 048
     Dates: start: 2005
  5. FENOBARBITAL [Concomitant]
     Indication: EPILEPSY
     Dosage: 100 MG, QD
     Route: 048
  6. CLONAZEPAM [Concomitant]
     Indication: EPILEPSY
     Dosage: 2 MG, QD
  7. CLONAZEPAM [Concomitant]
     Dosage: 2 MG, BID
  8. CLONAZEPAM [Concomitant]
     Dosage: 20 MG, TID

REACTIONS (11)
  - Arrhythmia [Recovered/Resolved]
  - Transaminases decreased [Recovered/Resolved]
  - White blood cell count increased [Recovered/Resolved]
  - Neutrophil count increased [Recovered/Resolved]
  - Epilepsy [Recovered/Resolved]
  - Very low density lipoprotein increased [Recovered/Resolved]
  - Low density lipoprotein increased [Recovered/Resolved]
  - Blood triglycerides increased [Recovered/Resolved]
  - Hypertension [Recovered/Resolved]
  - Fatigue [Not Recovered/Not Resolved]
  - Asthenia [Not Recovered/Not Resolved]
